FAERS Safety Report 24155154 (Version 1)
Quarter: 2024Q3

REPORT INFORMATION
  Report Type: Spontaneous
  Country: US (occurrence: US)
  Receive Date: 20240731
  Receipt Date: 20240731
  Transmission Date: 20241017
  Serious: No
  Sender: TEVA
  Company Number: US-TEVA-VS-3223979

PATIENT
  Sex: Male

DRUGS (1)
  1. HYDROXYUREA [Suspect]
     Active Substance: HYDROXYUREA
     Indication: Product used for unknown indication
     Dosage: UNKNOWN
     Route: 065

REACTIONS (7)
  - Fatigue [Unknown]
  - Illness [Unknown]
  - Dyspnoea [Unknown]
  - Memory impairment [Unknown]
  - Epistaxis [Unknown]
  - Diarrhoea [Unknown]
  - Decreased activity [Unknown]
